FAERS Safety Report 5009258-1 (Version None)
Quarter: 2006Q2

REPORT INFORMATION
  Report Type: 
  Country: None (occurrence: None)
  Receive Date: 20060522
  Receipt Date: 20060517
  Transmission Date: 20061013
  Serious: No
  Sender: FDA-Public Use
  Company Number: US 2006 0001

PATIENT
  Sex: Male

DRUGS (1)
  1. OXILAN 350 MGL/ML 100 ML [Suspect]
     Dates: start: 20060508

REACTIONS (4)
  - DYSPNOEA [None]
  - POST PROCEDURAL COMPLICATION [None]
  - PRURITUS [None]
  - RASH [None]
